FAERS Safety Report 4781612-2 (Version None)
Quarter: 2005Q3

REPORT INFORMATION
  Report Type: 
  Country: None (occurrence: None)
  Receive Date: 20050928
  Receipt Date: 20050926
  Transmission Date: 20060218
  Serious: Yes (Death)
  Sender: FDA-Public Use
  Company Number: US-SANOFI-SYNTHELABO-F03200500135

PATIENT
  Sex: Male

DRUGS (7)
  1. ELOXATIN [Suspect]
     Indication: COLORECTAL CANCER
     Route: 042
     Dates: start: 20050712, end: 20050712
  2. FLUOROURACIL [Suspect]
     Indication: COLORECTAL CANCER
     Route: 042
     Dates: start: 20050712, end: 20050712
  3. BEVACIZUMAB [Suspect]
     Indication: COLORECTAL CANCER
     Route: 042
     Dates: start: 20050628, end: 20050629
  4. LEUCOVORIN [Suspect]
     Indication: COLORECTAL CANCER
     Route: 042
     Dates: start: 20050712, end: 20050712
  5. METHADONE HCL [Concomitant]
     Dosage: UNK
     Route: 065
  6. DILAUDID [Concomitant]
     Dosage: UNK
     Route: 048
  7. DURAGESIC-100 [Concomitant]
     Dosage: UNK
     Route: 062

REACTIONS (5)
  - ANGINA PECTORIS [None]
  - ATRIOVENTRICULAR BLOCK FIRST DEGREE [None]
  - CARDIAC ARREST [None]
  - CARDIOTOXICITY [None]
  - SINUS BRADYCARDIA [None]
